FAERS Safety Report 14454138 (Version 6)
Quarter: 2018Q2

REPORT INFORMATION
  Report Type: Report from Study
  Country: CA (occurrence: CA)
  Receive Date: 20180129
  Receipt Date: 20180629
  Transmission Date: 20180711
  Serious: Yes (Other)
  Sender: FDA-Public Use
  Company Number: CA-PFIZER INC-2018034613

PATIENT
  Age: 61 Year
  Sex: Female

DRUGS (8)
  1. PREDNISONE. [Concomitant]
     Active Substance: PREDNISONE
     Dosage: 10 MG, DAILY, FOR 2 WEEKS
  2. ENTYVIO [Suspect]
     Active Substance: VEDOLIZUMAB
     Dosage: 300 MG, UNK
     Route: 042
     Dates: start: 20180622
  3. PREDNISONE. [Concomitant]
     Active Substance: PREDNISONE
     Dosage: 15 MG, DAILY, FOR 2 WEEKS
     Dates: start: 20170912
  4. ASA [Concomitant]
     Active Substance: ASPIRIN
     Dosage: 80 MG, UNK
     Dates: start: 201712
  5. ENTYVIO [Suspect]
     Active Substance: VEDOLIZUMAB
     Indication: COLITIS ULCERATIVE
     Dosage: 300 MG, UNK
     Route: 042
     Dates: start: 20171006
  6. PANTOLOC [Suspect]
     Active Substance: PANTOPRAZOLE SODIUM
     Dosage: 80 MG, QD
     Route: 048
     Dates: start: 201712
  7. HYDREA [Concomitant]
     Active Substance: HYDROXYUREA
     Indication: THROMBOCYTOSIS
     Dosage: UNK
     Dates: end: 20171205
  8. PREDNISONE. [Concomitant]
     Active Substance: PREDNISONE
     Dosage: 5 MG, DAILY, FOR 2 WEEKS

REACTIONS (4)
  - Frequent bowel movements [Not Recovered/Not Resolved]
  - Off label use [Unknown]
  - Mucous stools [Not Recovered/Not Resolved]
  - Haematochezia [Not Recovered/Not Resolved]

NARRATIVE: CASE EVENT DATE: 20180110
